FAERS Safety Report 4439372-0 (Version None)
Quarter: 2004Q3

REPORT INFORMATION
  Report Type: 
  Country: None (occurrence: None)
  Receive Date: 20040728
  Receipt Date: 20040310
  Transmission Date: 20050211
  Serious: No
  Sender: FDA-Public Use
  Company Number: USA040361593

PATIENT
  Age: 58 Year
  Sex: Female
  Weight: 59 kg

DRUGS (5)
  1. STRATTERA [Suspect]
     Indication: FATIGUE
     Dosage: 60 MG DAY
     Dates: start: 20030528
  2. REMICADE [Concomitant]
  3. METHOTREXATE [Concomitant]
  4. LUVOX [Concomitant]
  5. CLIMARA [Concomitant]

REACTIONS (2)
  - DRUG INTERACTION [None]
  - HEART RATE INCREASED [None]
